FAERS Safety Report 6987755-7 (Version None)
Quarter: 2010Q3

REPORT INFORMATION
  Report Type: 
  Country: None (occurrence: None)
  Receive Date: 20100916
  Receipt Date: 20100902
  Transmission Date: 20110219
  Serious: Yes (Other)
  Sender: FDA-Public Use
  Company Number: PHHY2010US59142

PATIENT
  Age: 82 Year
  Sex: Female

DRUGS (2)
  1. ZOMETA [Suspect]
     Dosage: UNK
  2. ZOMETA [Suspect]
     Dosage: 1 MG

REACTIONS (3)
  - BLOOD CALCIUM INCREASED [None]
  - HYPERTROPHIC CARDIOMYOPATHY [None]
  - RENAL IMPAIRMENT [None]
